FAERS Safety Report 6568692-9 (Version None)
Quarter: 2010Q1

REPORT INFORMATION
  Report Type: 
  Country: None (occurrence: None)
  Receive Date: 20100203
  Receipt Date: 20100125
  Transmission Date: 20100710
  Serious: Yes (Hospitalization, Other)
  Sender: FDA-Public Use
  Company Number: PHHY2008CN30725

PATIENT
  Age: 55 Year
  Sex: Male

DRUGS (2)
  1. LOTENSIN [Suspect]
     Indication: HYPERTENSION
     Dosage: 1 DF, QD
     Route: 048
     Dates: start: 20081113
  2. AMLODIPINE [Concomitant]
     Indication: HYPERTENSION

REACTIONS (14)
  - ALANINE AMINOTRANSFERASE INCREASED [None]
  - ASPARTATE AMINOTRANSFERASE INCREASED [None]
  - BACK PAIN [None]
  - BODY TEMPERATURE INCREASED [None]
  - FACE OEDEMA [None]
  - GENERALISED OEDEMA [None]
  - HYPERTENSION [None]
  - NASOPHARYNGITIS [None]
  - NEPHRITIC SYNDROME [None]
  - OEDEMA PERIPHERAL [None]
  - ORBITAL OEDEMA [None]
  - POLLAKIURIA [None]
  - PROTEIN URINE PRESENT [None]
  - RENAL PAIN [None]
